FAERS Safety Report 23230292 (Version 1)
Quarter: 2023Q4

REPORT INFORMATION
  Report Type: Spontaneous
  Country: CN (occurrence: CN)
  Receive Date: 20231127
  Receipt Date: 20231127
  Transmission Date: 20240109
  Serious: Yes (Other)
  Sender: FDA-Public Use
  Company Number: None

PATIENT
  Age: 37 Year
  Sex: Male
  Weight: 68 kg

DRUGS (9)
  1. CYCLOPHOSPHAMIDE [Suspect]
     Active Substance: CYCLOPHOSPHAMIDE
     Indication: Chemotherapy
     Dosage: 2 G, ONE TIME IN ONE DAY, D1, DILUTED WITH SODIUM CHLORIDE 500 ML, AS A PART OF VDC REGIMEN
     Route: 041
     Dates: start: 20231107, end: 20231107
  2. CYCLOPHOSPHAMIDE [Suspect]
     Active Substance: CYCLOPHOSPHAMIDE
     Indication: Sarcoma
  3. SODIUM CHLORIDE [Suspect]
     Active Substance: SODIUM CHLORIDE
     Indication: Medication dilution
     Dosage: 500 ML, ONE TIME IN ONE DAY, D1, USED TO DILUTE CYCLOPHOSPHAMIDE 2 G, AS A PART OF VDC REGIMEN
     Route: 041
     Dates: start: 20231107, end: 20231107
  4. SODIUM CHLORIDE [Suspect]
     Active Substance: SODIUM CHLORIDE
     Dosage: 100 ML, ONE TIME IN ONE DAY, D1, USED TO DILUTE DOXORUBICIN HYDROCHLORIDE 110 MG, AS A PART OF VDC R
     Route: 041
     Dates: start: 20231107, end: 20231107
  5. SODIUM CHLORIDE [Suspect]
     Active Substance: SODIUM CHLORIDE
     Dosage: 20 ML, ONE TIME IN ONE DAY, D1, USED TO DILUTE VINCRISTINE SULFATE 2 MG, AS A PART OF VDC REGIMEN
     Route: 041
     Dates: start: 20231107, end: 20231107
  6. DOXORUBICIN HYDROCHLORIDE [Suspect]
     Active Substance: DOXORUBICIN HYDROCHLORIDE
     Indication: Chemotherapy
     Dosage: 110 MG, ONE TIME IN ONE DAY, D1, DILUTED WITH SODIUM CHLORIDE 100 ML, AS A PART OF VDC REGIMEN
     Route: 041
     Dates: start: 20231107, end: 20231107
  7. DOXORUBICIN HYDROCHLORIDE [Suspect]
     Active Substance: DOXORUBICIN HYDROCHLORIDE
     Indication: Sarcoma
  8. VINCRISTINE SULFATE [Suspect]
     Active Substance: VINCRISTINE SULFATE
     Indication: Chemotherapy
     Dosage: 2 MG, ONE TIME IN ONE DAY, D1, DILUTED WITH SODIUM CHLORIDE 20 ML, AS A PART OF VDC REGIMEN
     Route: 041
     Dates: start: 20231107, end: 20231107
  9. VINCRISTINE SULFATE [Suspect]
     Active Substance: VINCRISTINE SULFATE
     Indication: Sarcoma

REACTIONS (1)
  - Myelosuppression [Recovering/Resolving]

NARRATIVE: CASE EVENT DATE: 20231116
